FAERS Safety Report 20829376 (Version 3)
Quarter: 2023Q1

REPORT INFORMATION
  Report Type: Spontaneous
  Country: US (occurrence: US)
  Receive Date: 20220513
  Receipt Date: 20230118
  Transmission Date: 20230418
  Serious: No
  Sender: FDA-Public Use
  Company Number: US-PFIZER INC-202200459996

PATIENT
  Age: 40 Year
  Sex: Male

DRUGS (1)
  1. XELJANZ XR [Suspect]
     Active Substance: TOFACITINIB CITRATE
     Dosage: 11 MG
     Dates: start: 20220122

REACTIONS (6)
  - Therapeutic product effect incomplete [Unknown]
  - Fatigue [Unknown]
  - Constipation [Unknown]
  - Nasopharyngitis [Unknown]
  - Nasal congestion [Unknown]
  - Headache [Unknown]
